FAERS Safety Report 4677944-9 (Version None)
Quarter: 2005Q1

REPORT INFORMATION
  Report Type: 
  Country: None (occurrence: None)
  Receive Date: 20041217
  Receipt Date: 20041217
  Transmission Date: 20050727
  Serious: Yes (Other)
  Sender: FDA-Public Use
  Company Number: None

PATIENT
  Sex: Female
  Weight: 62.1428 kg

DRUGS (1)
  1. GENERIC ZESTRIL (LISINOPRIL) [Suspect]
     Indication: CAROTID ARTERY ANEURYSM
     Dosage: 10 MG PO BID
     Route: 048
     Dates: start: 20030201, end: 20030301

REACTIONS (2)
  - CONSTIPATION [None]
  - REFUSAL OF TREATMENT BY PATIENT [None]
